FAERS Safety Report 24785175 (Version 1)
Quarter: 2024Q4

REPORT INFORMATION
  Report Type: Spontaneous
  Country: US (occurrence: None)
  Receive Date: 20241227
  Receipt Date: 20241227
  Transmission Date: 20250115
  Serious: Yes (Hospitalization)
  Sender: Public
  Company Number: None

PATIENT
  Sex: Male

DRUGS (6)
  1. EVEROLIMUS [Suspect]
     Active Substance: EVEROLIMUS
     Indication: Renal cancer
     Dosage: 2.5 MG DAILY ORAL ?
     Route: 048
     Dates: start: 202407
  2. EVEROLIMUS [Suspect]
     Active Substance: EVEROLIMUS
     Indication: Metastases to central nervous system
  3. EVEROLIMUS [Suspect]
     Active Substance: EVEROLIMUS
     Indication: Polymyalgia rheumatica
  4. LENVIMA [Suspect]
     Active Substance: LENVATINIB
  5. LOSARTAN [Suspect]
     Active Substance: LOSARTAN
  6. NORVASC [Suspect]
     Active Substance: AMLODIPINE BESYLATE

REACTIONS (2)
  - Hypotension [None]
  - Therapy cessation [None]
